FAERS Safety Report 6760878-3 (Version None)
Quarter: 2010Q2

REPORT INFORMATION
  Report Type: 
  Country: None (occurrence: None)
  Receive Date: 20100608
  Receipt Date: 20100531
  Transmission Date: 20101027
  Serious: Yes (Other)
  Sender: FDA-Public Use
  Company Number: US-ROCHE-706888

PATIENT
  Age: 55 Year
  Sex: Male

DRUGS (2)
  1. PEGINTERFERON ALFA-2A [Suspect]
     Dosage: DOSE: 180 MCG/ML
     Route: 065
  2. RIBAVIRIN [Suspect]
     Dosage: DIVIDED DOSES
     Route: 065

REACTIONS (2)
  - FACIAL PALSY [None]
  - GUILLAIN-BARRE SYNDROME [None]
